FAERS Safety Report 15950633 (Version 1)
Quarter: 2019Q1

REPORT INFORMATION
  Report Type: Spontaneous
  Country: BR (occurrence: BR)
  Receive Date: 20190212
  Receipt Date: 20190212
  Transmission Date: 20190417
  Serious: Yes (Other)
  Sender: FDA-Public Use
  Company Number: PHHY2019BR031607

PATIENT
  Sex: Female

DRUGS (2)
  1. AZORGA [Suspect]
     Active Substance: BRINZOLAMIDE\TIMOLOL MALEATE
     Indication: PRODUCT USED FOR UNKNOWN INDICATION
     Route: 065
  2. SIMBRINZA [Suspect]
     Active Substance: BRIMONIDINE TARTRATE\BRINZOLAMIDE
     Indication: PRODUCT USED FOR UNKNOWN INDICATION
     Route: 065

REACTIONS (10)
  - Anaemia [Unknown]
  - Loss of consciousness [Unknown]
  - Sleep disorder [Unknown]
  - Hypersomnia [Unknown]
  - Contraindicated product administered [Unknown]
  - Nausea [Unknown]
  - Eating disorder [Unknown]
  - Somnolence [Unknown]
  - Visual impairment [Unknown]
  - Feeling of despair [Unknown]
